FAERS Safety Report 8572039-6 (Version None)
Quarter: 2012Q3

REPORT INFORMATION
  Report Type: 
  Country: None (occurrence: None)
  Receive Date: 20120806
  Receipt Date: 20120725
  Transmission Date: 20120928
  Serious: Yes (Hospitalization)
  Sender: FDA-Public Use
  Company Number: IT-BRISTOL-MYERS SQUIBB COMPANY-16806366

PATIENT
  Age: 62 Year
  Sex: Female

DRUGS (9)
  1. AMARYL [Concomitant]
     Dosage: AMARYL TAB
     Route: 048
  2. BISOPROLOL FUMARATE [Suspect]
     Indication: ARRHYTHMIA PROPHYLAXIS
     Route: 048
     Dates: start: 20110610, end: 20120610
  3. VALSARTAN [Concomitant]
     Dosage: VALPRESSION CAPSULES
     Route: 048
  4. FUROSEMIDE [Concomitant]
     Dosage: FUROSEMIDE TABLET
     Route: 048
  5. ATORVASTATIN CALCIUM [Concomitant]
     Dosage: TOTALIP TABS
     Route: 048
  6. AMIODARONE HCL [Suspect]
     Indication: ARRHYTHMIA PROPHYLAXIS
     Dosage: AMIODARONE CLORIDRATO TABLET
     Route: 048
     Dates: start: 20110610, end: 20120610
  7. METFORMIN HCL [Concomitant]
     Dosage: METFORMINA CLORIDRATO TABLET
     Route: 048
  8. COUMADIN [Suspect]
     Indication: ANTICOAGULANT THERAPY
     Dates: start: 20110610, end: 20120610
  9. LEVEMIR [Concomitant]
     Dosage: LEVEMIR SOULTION FOR INJECTION SUBCUTANEOUS USE
     Route: 058

REACTIONS (3)
  - ABDOMINAL PAIN LOWER [None]
  - RECTAL HAEMORRHAGE [None]
  - ATRIOVENTRICULAR BLOCK SECOND DEGREE [None]
